FAERS Safety Report 7945137-5 (Version None)
Quarter: 2011Q4

REPORT INFORMATION
  Report Type: 
  Country: None (occurrence: None)
  Receive Date: 20111129
  Receipt Date: 20111129
  Transmission Date: 20120403
  Serious: Yes (Other)
  Sender: FDA-Public Use
  Company Number: None

PATIENT
  Sex: Female
  Weight: 90.718 kg

DRUGS (2)
  1. BUSPAR [Suspect]
     Indication: ANXIETY
     Dosage: HALF OF A 5 MG PILL
     Route: 048
     Dates: start: 20021101, end: 20021103
  2. BUSPAR [Suspect]
     Indication: DEPRESSION
     Dosage: HALF OF A 5 MG PILL
     Route: 048
     Dates: start: 20021101, end: 20021103

REACTIONS (3)
  - SOMNOLENCE [None]
  - DISORIENTATION [None]
  - HYPERSOMNIA [None]
